FAERS Safety Report 7393174-4 (Version None)
Quarter: 2011Q2

REPORT INFORMATION
  Report Type: 
  Country: None (occurrence: None)
  Receive Date: 20110404
  Receipt Date: 20110321
  Transmission Date: 20111010
  Serious: Yes (Other)
  Sender: FDA-Public Use
  Company Number: US-MYLANLABS-2011S1006711

PATIENT

DRUGS (2)
  1. INVESTIGATIONAL DRUG [Suspect]
     Indication: MALIGNANT MELANOMA
     Route: 042
  2. MELPHALAN [Suspect]
     Indication: MALIGNANT MELANOMA

REACTIONS (1)
  - BLOOD CREATINE PHOSPHOKINASE INCREASED [None]
